FAERS Safety Report 9306927 (Version 1)
Quarter: 2013Q2

REPORT INFORMATION
  Report Type: Report from Study
  Country: MX (occurrence: MX)
  Receive Date: 20130523
  Receipt Date: 20130523
  Transmission Date: 20140414
  Serious: Yes (Other)
  Sender: FDA-Public Use
  Company Number: PHHY2013MX051833

PATIENT
  Age: 74 Year
  Sex: Male

DRUGS (8)
  1. DIOVAN [Suspect]
     Indication: HYPERTENSION
     Dosage: 1 DF(160MG), DAILY
     Route: 048
     Dates: start: 201105
  2. SIFROL [Concomitant]
     Dosage: UNK UKN, UNK
  3. MODIODAL [Concomitant]
     Dosage: UNK UKN, UNK
  4. LEXAPRO [Concomitant]
     Dosage: UNK UKN, UNK
  5. BACLOFEN [Concomitant]
     Dosage: UNK UKN, UNK
  6. ASPIRINA [Concomitant]
     Dosage: UNK UKN, UNK
  7. OMEPRAZOLE [Concomitant]
     Dosage: UNK UKN, UNK
  8. RANITIDINE [Concomitant]
     Dosage: UNK UKN, UNK

REACTIONS (1)
  - Terminal state [Not Recovered/Not Resolved]
